FAERS Safety Report 4872942-4 (Version None)
Quarter: 2006Q1

REPORT INFORMATION
  Report Type: 
  Country: None (occurrence: None)
  Receive Date: 20060105
  Receipt Date: 20050330
  Transmission Date: 20060701
  Serious: No
  Sender: FDA-Public Use
  Company Number: US-BRISTOL-MYERS SQUIBB COMPANY-12914974

PATIENT
  Sex: Male

DRUGS (1)
  1. SERZONE [Suspect]
     Route: 048
     Dates: start: 20040601, end: 20041001

REACTIONS (2)
  - BLOOD BILIRUBIN INCREASED [None]
  - PAINFUL ERECTION [None]
